FAERS Safety Report 5402851-3 (Version None)
Quarter: 2007Q3

REPORT INFORMATION
  Report Type: 
  Country: None (occurrence: None)
  Receive Date: 20070727
  Receipt Date: 20070717
  Transmission Date: 20080115
  Serious: No
  Sender: FDA-Public Use
  Company Number: 2007-161461-NL

PATIENT

DRUGS (1)
  1. NUVARING [Suspect]
     Dosage: DF;

REACTIONS (1)
  - DEPRESSION SUICIDAL [None]
